FAERS Safety Report 9721390 (Version 1)
Quarter: 2013Q4

REPORT INFORMATION
  Report Type: Spontaneous
  Country: US (occurrence: US)
  Receive Date: 20131129
  Receipt Date: 20131129
  Transmission Date: 20140711
  Serious: No
  Sender: FDA-Public Use
  Company Number: US-PFIZER INC-2013341798

PATIENT
  Age: 51 Year
  Sex: Male
  Weight: 109 kg

DRUGS (4)
  1. CHANTIX [Suspect]
     Indication: SMOKING CESSATION THERAPY
     Dosage: UNK
     Dates: start: 2010, end: 2010
  2. CELEXA [Concomitant]
     Indication: DEPRESSION
     Dosage: 20 MG, DAILY
     Dates: start: 2010
  3. LOPID [Concomitant]
     Indication: BLOOD CHOLESTEROL INCREASED
     Dosage: 600 MG, 2X/DAY
  4. LOTREL [Concomitant]
     Indication: HYPERTENSION
     Dosage: AMLODIPINE 10MG/ BENAZEPRIL HYDROCHLORIDE 40 MG, DAILY

REACTIONS (1)
  - Nightmare [Unknown]
